FAERS Safety Report 4266805-5 (Version None)
Quarter: 2004Q1

REPORT INFORMATION
  Report Type: 
  Country: None (occurrence: None)
  Receive Date: 20040108
  Receipt Date: 20020805
  Transmission Date: 20041129
  Serious: No
  Sender: FDA-Public Use
  Company Number: US-GLAXOSMITHKLINE-A0376855A

PATIENT
  Age: 41 Year
  Sex: Male

DRUGS (7)
  1. EPIVIR [Suspect]
     Indication: HIV INFECTION
     Route: 048
     Dates: start: 20020501
  2. ZIAGEN [Suspect]
     Indication: HIV INFECTION
     Dates: start: 20020501
  3. KALETRA [Suspect]
     Indication: HIV INFECTION
     Dates: start: 20020501
  4. ANDROGEL [Suspect]
     Dates: start: 20020501
  5. NORVIR [Suspect]
     Indication: ILL-DEFINED DISORDER
     Route: 065
  6. VIREAD [Suspect]
     Indication: ILL-DEFINED DISORDER
     Route: 065
  7. REYATAZ [Suspect]
     Indication: ILL-DEFINED DISORDER
     Route: 065

REACTIONS (16)
  - ALOPECIA [None]
  - BONE PAIN [None]
  - CHEST PAIN [None]
  - DYSPNOEA [None]
  - HEADACHE [None]
  - HYPERCHLORHYDRIA [None]
  - KERATOCONJUNCTIVITIS SICCA [None]
  - LETHARGY [None]
  - LIP DRY [None]
  - LIPODYSTROPHY ACQUIRED [None]
  - NECK PAIN [None]
  - OESOPHAGEAL PAIN [None]
  - PLATELET COUNT DECREASED [None]
  - PRURITUS [None]
  - TREMOR [None]
  - WEIGHT DECREASED [None]
